FAERS Safety Report 5777951 (Version 2)
Quarter: 2013Q3

REPORT INFORMATION
  Report Type: Spontaneous
  Country: GB (occurrence: GB)
  Receive Date: 20050419
  Receipt Date: 20130906
  Transmission Date: 20140515
  Serious: Yes (Other)
  Sender: FDA-Public Use
  Company Number: GB-JNJFOC-20040608415

PATIENT
  Sex: Female

DRUGS (1)
  1. OVEX [Suspect]
     Indication: ENTEROBIASIS
     Route: 065
     Dates: start: 20040619

REACTIONS (2)
  - Hypertension [Not Recovered/Not Resolved]
  - Exposure during pregnancy [Recovered/Resolved]
